FAERS Safety Report 7204778-3 (Version None)
Quarter: 2010Q4

REPORT INFORMATION
  Report Type: 
  Country: None (occurrence: None)
  Receive Date: 20101230
  Receipt Date: 20101220
  Transmission Date: 20110411
  Serious: Yes (Hospitalization)
  Sender: FDA-Public Use
  Company Number: US-WATSON-2010-16517

PATIENT
  Age: 64 Year
  Sex: Female

DRUGS (2)
  1. TACROLIMUS [Suspect]
     Indication: PROPHYLAXIS AGAINST TRANSPLANT REJECTION
     Dosage: 10 MG, BID
  2. RANOLAZINE [Suspect]
     Indication: ANGINA PECTORIS
     Dosage: 500 MG, BID

REACTIONS (2)
  - DRUG INTERACTION [None]
  - INHIBITORY DRUG INTERACTION [None]
